FAERS Safety Report 8511396-3 (Version None)
Quarter: 2012Q3

REPORT INFORMATION
  Report Type: 
  Country: None (occurrence: None)
  Receive Date: 20120716
  Receipt Date: 20120703
  Transmission Date: 20120928
  Serious: Yes (Hospitalization, Congenital Anomaly)
  Sender: FDA-Public Use
  Company Number: GR-NOVOPROD-355493

PATIENT
  Weight: 1.84 kg

DRUGS (1)
  1. NOVOMIX 30 FLEXPEN [Suspect]
     Indication: DIABETES MELLITUS
     Route: 064

REACTIONS (5)
  - PREMATURE BABY [None]
  - LOW BIRTH WEIGHT BABY [None]
  - GENDER IDENTITY DISORDER [None]
  - FOETAL EXPOSURE DURING PREGNANCY [None]
  - CARDIAC MURMUR [None]
